FAERS Safety Report 24695167 (Version 1)
Quarter: 2024Q4

REPORT INFORMATION
  Report Type: Spontaneous
  Country: US (occurrence: None)
  Receive Date: 20241204
  Receipt Date: 20241204
  Transmission Date: 20250115
  Serious: Yes (Hospitalization, Disabling, Other)
  Sender: Public
  Company Number: None

PATIENT
  Age: 50 Year
  Sex: Female
  Weight: 26.76 kg

DRUGS (4)
  1. RINVOQ [Suspect]
     Active Substance: UPADACITINIB
     Dates: start: 202106, end: 202410
  2. AZULFIDINE [Suspect]
     Active Substance: SULFASALAZINE
  3. SULFASALAZINE [Suspect]
     Active Substance: SULFASALAZINE
  4. NALTREXONE [Suspect]
     Active Substance: NALTREXONE

REACTIONS (27)
  - Nonspecific reaction [None]
  - Retinal tear [None]
  - Retinal detachment [None]
  - Gastrointestinal disorder [None]
  - Sensory loss [None]
  - Jaundice [None]
  - Vomiting [None]
  - Chills [None]
  - Uterine haemorrhage [None]
  - Blood creatine phosphokinase increased [None]
  - Insomnia [None]
  - Headache [None]
  - Alopecia [None]
  - Liver disorder [None]
  - Dysstasia [None]
  - Gait disturbance [None]
  - Dry mouth [None]
  - Dry eye [None]
  - Ear infection [None]
  - Fungal infection [None]
  - Pneumonia [None]
  - COVID-19 [None]
  - Infection [None]
  - Deafness [None]
  - Illness [None]
  - Product complaint [None]
  - Economic problem [None]
